FAERS Safety Report 5852896-4 (Version None)
Quarter: 2008Q3

REPORT INFORMATION
  Report Type: 
  Country: None (occurrence: None)
  Receive Date: 20080821
  Receipt Date: 20080812
  Transmission Date: 20090109
  Serious: Yes (Other)
  Sender: FDA-Public Use
  Company Number: PHEH2008US07231

PATIENT
  Sex: Female

DRUGS (1)
  1. DIOVAN [Suspect]
     Indication: CARDIAC FAILURE CONGESTIVE
     Dosage: 60 MG, UNK

REACTIONS (5)
  - DIALYSIS [None]
  - DIARRHOEA [None]
  - NAUSEA [None]
  - RENAL DISORDER [None]
  - VOMITING [None]
